FAERS Safety Report 6518280-5 (Version None)
Quarter: 2009Q4

REPORT INFORMATION
  Report Type: 
  Country: None (occurrence: None)
  Receive Date: 20091223
  Receipt Date: 20091223
  Transmission Date: 20100525
  Serious: Yes (Other)
  Sender: FDA-Public Use
  Company Number: None

PATIENT
  Age: 61 Year
  Sex: Male
  Weight: 111.1313 kg

DRUGS (1)
  1. PRILOSEC OTC [Suspect]
     Indication: GASTROOESOPHAGEAL REFLUX DISEASE
     Dosage: 20 MG 1 IN MORNING PO
     Route: 048
     Dates: start: 20091219, end: 20091220

REACTIONS (3)
  - DEPRESSION [None]
  - SLEEP DISORDER [None]
  - SUICIDAL IDEATION [None]
